FAERS Safety Report 8204443-X (Version None)
Quarter: 2012Q1

REPORT INFORMATION
  Report Type: 
  Country: None (occurrence: None)
  Receive Date: 20120309
  Receipt Date: 20120302
  Transmission Date: 20120608
  Serious: Yes (Disabling, Other)
  Sender: FDA-Public Use
  Company Number: 1202-069

PATIENT
  Age: 68 Year
  Sex: Male
  Weight: 118.3888 kg

DRUGS (15)
  1. NEXIUM [Concomitant]
  2. EYLEA [Suspect]
     Indication: MACULAR DEGENERATION
     Dosage: 2 MG, ONCE, NTRAVITREAL
     Dates: start: 20120106, end: 20120106
  3. WELCHOL [Concomitant]
  4. METFORMIN HCL [Concomitant]
  5. BUPROPION  XL (BUPROPION) [Concomitant]
  6. VITAMIN D (EROCALCIFEROL) [Concomitant]
  7. MAGNESIUM (MAGNESIUM) [Concomitant]
  8. LANTUS [Concomitant]
  9. BYETTA [Concomitant]
  10. ASPIRIN [Concomitant]
  11. NIASPAN [Concomitant]
  12. LOVASTATIN [Concomitant]
  13. FISH OIL (FISH OIL) [Concomitant]
  14. MESTINON [Concomitant]
  15. MULTIVITAMIN (MULTIVITAMIN /00831701/) [Concomitant]

REACTIONS (4)
  - MYASTHENIA GRAVIS [None]
  - AMYOTROPHIC LATERAL SCLEROSIS [None]
  - TONGUE DISORDER [None]
  - SPEECH DISORDER [None]
